FAERS Safety Report 8485294 (Version 2)
Quarter: 2014Q2

REPORT INFORMATION
  Report Type: Spontaneous
  Country: IT (occurrence: IT)
  Receive Date: 20120330
  Receipt Date: 20140530
  Transmission Date: 20141212
  Serious: Yes (Hospitalization)
  Sender: FDA-Public Use
  Company Number: IT-GLAXOSMITHKLINE-B0791905A

PATIENT
  Age: 86 Year
  Sex: Male

DRUGS (10)
  1. FLUSPIRAL [Suspect]
     Indication: CHRONIC OBSTRUCTIVE PULMONARY DISEASE
     Route: 065
     Dates: start: 20091215, end: 20091222
  2. BRONCOVALEAS [Suspect]
     Indication: CHRONIC OBSTRUCTIVE PULMONARY DISEASE
     Route: 065
     Dates: start: 20091215, end: 20091215
  3. OXIVENT [Suspect]
     Indication: CHRONIC OBSTRUCTIVE PULMONARY DISEASE
     Route: 065
     Dates: start: 20091215, end: 20091222
  4. LASIX [Concomitant]
  5. CORDARONE [Concomitant]
  6. PANTECTA [Concomitant]
  7. LOSAPREX [Concomitant]
  8. PRADIF [Concomitant]
  9. HUMULIN [Concomitant]
  10. COUMADIN [Concomitant]

REACTIONS (2)
  - Throat tightness [Recovered/Resolved]
  - Dyspnoea [Recovered/Resolved]
